FAERS Safety Report 15075101 (Version 1)
Quarter: 2018Q2

REPORT INFORMATION
  Report Type: Spontaneous
  Country: US (occurrence: US)
  Receive Date: 20180627
  Receipt Date: 20180627
  Transmission Date: 20180711
  Serious: Yes (Hospitalization, Other)
  Sender: FDA-Public Use
  Company Number: US-SAOL THERAPEUTICS-2017SAO03463

PATIENT
  Age: 31 Year
  Sex: Male
  Weight: 108.84 kg

DRUGS (2)
  1. BACLOFEN. [Suspect]
     Active Substance: BACLOFEN
     Indication: MUSCLE SPASTICITY
     Dosage: 429.8 ?G, \DAY
     Route: 037
  2. BACLOFEN. [Suspect]
     Active Substance: BACLOFEN
     Dosage: 96.1 ?G, \DAY
     Route: 037

REACTIONS (5)
  - Accidental overdose [Unknown]
  - Device programming error [Recovered/Resolved]
  - Blood pressure decreased [Recovered/Resolved]
  - Therapy non-responder [Unknown]
  - Complication associated with device [Recovered/Resolved]

NARRATIVE: CASE EVENT DATE: 20171207
